FAERS Safety Report 7427757-X (Version None)
Quarter: 2011Q2

REPORT INFORMATION
  Report Type: 
  Country: None (occurrence: None)
  Receive Date: 20110421
  Receipt Date: 20110414
  Transmission Date: 20111010
  Serious: Yes (Life-Threatening, Hospitalization)
  Sender: FDA-Public Use
  Company Number: FR-ELI_LILLY_AND_COMPANY-FR201104004635

PATIENT
  Sex: Male

DRUGS (3)
  1. ZYPADHERA [Suspect]
     Indication: SCHIZOPHRENIA
     Dosage: 405 MG, MONTHLY (1/M)
     Route: 030
  2. ABILIFY [Concomitant]
     Indication: SCHIZOPHRENIA
     Dosage: 15 MG, THREE TIME A DAY
     Route: 048
  3. RIVOTRIL [Concomitant]
     Indication: SCHIZOPHRENIA
     Dosage: UNK
     Route: 048

REACTIONS (2)
  - THERMAL BURN [None]
  - INTENTIONAL SELF-INJURY [None]
